FAERS Safety Report 6725819-3 (Version None)
Quarter: 2010Q2

REPORT INFORMATION
  Report Type: 
  Country: None (occurrence: None)
  Receive Date: 20100514
  Receipt Date: 20100503
  Transmission Date: 20101027
  Serious: Yes (Hospitalization, Other)
  Sender: FDA-Public Use
  Company Number: PHEH2009US02702

PATIENT
  Sex: Female
  Weight: 62.27 kg

DRUGS (35)
  1. COMBIPATCH [Suspect]
     Indication: HORMONE REPLACEMENT THERAPY
     Dosage: UNK
     Route: 062
     Dates: start: 19990929, end: 20010701
  2. ACTIVELLA [Suspect]
     Indication: HORMONE REPLACEMENT THERAPY
     Dosage: UNK, UNK
  3. PREMPRO [Suspect]
     Indication: HORMONE REPLACEMENT THERAPY
     Dosage: UNK, UNK
  4. LANOXIN [Concomitant]
     Dosage: .25 MG DAILY
  5. LOPRESSOR [Concomitant]
     Dosage: 25 MG DAILY
  6. DYAZIDE [Concomitant]
     Dosage: 37.5/25 DAILY
  7. NIFEREX (POLYSACCHARIDE-IRON COMPLEX) [Concomitant]
     Dosage: 1 TAB DAILY
  8. COUMADIN [Concomitant]
     Dosage: 5 MG/2.5 MG ALTERNATING
  9. OXYGEN THERAPY [Concomitant]
     Dosage: 2 LITERS/NASAL CANNULA
  10. METOPROLOL SUCCINATE [Concomitant]
     Dosage: 50 MG 1 BY MOUTH DAILY
  11. PAXIL [Concomitant]
     Dosage: 25 MG 1 BY MOUTH DAILY
  12. WELLBUTRIN SR [Concomitant]
     Dosage: 15O MG BY MOUTH DAILY
  13. SPIRONOLACTONE [Concomitant]
     Dosage: 25 MG 1/2 BY MOUTH DAILY
  14. LASIX [Concomitant]
     Dosage: UNK
  15. ZYRTEC [Concomitant]
     Dosage: UNK
  16. DIGITEK [Concomitant]
     Dosage: 0.25
  17. DIOVAN [Concomitant]
     Dosage: 160
  18. WELLBUTRIN SR [Concomitant]
     Dosage: 150
  19. POTASSIUM [Concomitant]
     Dosage: 20 NCG
  20. CALCIUM [Concomitant]
  21. WARFARIN SODIUM [Concomitant]
     Dosage: 4 MG
  22. DEMADEX [Concomitant]
     Dosage: UNK
  23. ALLEGRA [Concomitant]
     Dosage: UNK
  24. TAMOXIFEN CITRATE [Concomitant]
     Dosage: 20 MG
  25. LEXAPRO [Concomitant]
     Dosage: 10 MG
  26. FUROSEMIDE [Concomitant]
     Dosage: 20 MG
  27. TRIAMTERENE AND HYDROCHLOROTHIAZID ^HARRIS^ [Concomitant]
     Dosage: 37.5/25MG
  28. ASTELIN [Concomitant]
     Dosage: 137 MCG
     Route: 045
  29. ZYBAN [Concomitant]
     Dosage: 150 MG
  30. COMBIVENT                               /GFR/ [Concomitant]
     Dosage: UNK
  31. HORMONES NOS [Concomitant]
     Indication: BREAST CANCER
     Dosage: UNK
  32. ARIMIDEX [Concomitant]
  33. ZOMETA [Concomitant]
  34. TYLENOL (CAPLET) [Concomitant]
  35. MULTI-VITAMINS [Concomitant]

REACTIONS (24)
  - ATAXIA [None]
  - BREAST CANCER [None]
  - CARDIAC FAILURE CONGESTIVE [None]
  - CARDIOMEGALY [None]
  - CEREBELLAR HAEMORRHAGE [None]
  - CEREBELLAR SYNDROME [None]
  - CEREBRAL VENTRICLE DILATATION [None]
  - CHRONIC OBSTRUCTIVE PULMONARY DISEASE [None]
  - COLONIC POLYP [None]
  - COLONOSCOPY [None]
  - CRANIECTOMY [None]
  - DEPRESSION [None]
  - DIPLOPIA [None]
  - DIZZINESS [None]
  - DYSARTHRIA [None]
  - GAIT SPASTIC [None]
  - HEAD INJURY [None]
  - HEADACHE [None]
  - OCCULT BLOOD POSITIVE [None]
  - PLANTAR FASCIITIS [None]
  - PRESYNCOPE [None]
  - SURGERY [None]
  - VAGINAL HAEMORRHAGE [None]
  - WALKING AID USER [None]
